FAERS Safety Report 21751185 (Version 2)
Quarter: 2023Q1

REPORT INFORMATION
  Report Type: Spontaneous
  Country: US (occurrence: US)
  Receive Date: 20221220
  Receipt Date: 20230112
  Transmission Date: 20230417
  Serious: No
  Sender: FDA-Public Use
  Company Number: US-TOLMAR, INC.-22US037838

PATIENT
  Age: 83 Year
  Sex: Male

DRUGS (1)
  1. ELIGARD [Suspect]
     Active Substance: LEUPROLIDE ACETATE
     Indication: Prostate cancer
     Dosage: 22.5 MILLIGRAM, Q 3 MONTH
     Route: 058
     Dates: start: 20221128

REACTIONS (2)
  - Intercepted product preparation error [Unknown]
  - Syringe issue [Unknown]

NARRATIVE: CASE EVENT DATE: 20221128
